FAERS Safety Report 25077026 (Version 3)
Quarter: 2025Q3

REPORT INFORMATION
  Report Type: Report from Study
  Country: US (occurrence: US)
  Receive Date: 20250314
  Receipt Date: 20250809
  Transmission Date: 20251021
  Serious: Yes (Other)
  Sender: ALEXION PHARMACEUTICALS
  Company Number: US-AstraZeneca-CH-00825151A

PATIENT
  Age: 89 Year
  Sex: Female

DRUGS (1)
  1. ULTOMIRIS [Suspect]
     Active Substance: RAVULIZUMAB-CWVZ
     Indication: Myasthenia gravis

REACTIONS (5)
  - Neuropathy peripheral [Unknown]
  - Nail growth abnormal [Unknown]
  - Foot deformity [Unknown]
  - Urinary tract infection [Unknown]
  - Pelvic cyst [Recovered/Resolved]

NARRATIVE: CASE EVENT DATE: 20241201
